FAERS Safety Report 13852430 (Version 2)
Quarter: 2017Q3

REPORT INFORMATION
  Report Type: Report from Study
  Country: None (occurrence: US)
  Receive Date: 20170810
  Receipt Date: 20170919
  Transmission Date: 20171127
  Serious: Yes (Hospitalization)
  Sender: FDA-Public Use
  Company Number: US-ABBVIE-17K-163-2067234-00

PATIENT
  Sex: Male

DRUGS (1)
  1. HUMIRA [Suspect]
     Active Substance: ADALIMUMAB
     Indication: COLITIS ULCERATIVE
     Route: 058

REACTIONS (6)
  - Tremor [Unknown]
  - Asthenia [Unknown]
  - Heat exhaustion [Recovering/Resolving]
  - Atypical pneumonia [Recovering/Resolving]
  - Hyperhidrosis [Not Recovered/Not Resolved]
  - Heat stroke [Recovering/Resolving]

NARRATIVE: CASE EVENT DATE: 2017
